FAERS Safety Report 8212361-6 (Version None)
Quarter: 2012Q1

REPORT INFORMATION
  Report Type: 
  Country: None (occurrence: None)
  Receive Date: 20120315
  Receipt Date: 20120307
  Transmission Date: 20120608
  Serious: Yes (Life-Threatening, Hospitalization)
  Sender: FDA-Public Use
  Company Number: US-JNJFOC-20100905530

PATIENT
  Sex: Male
  Weight: 101.97 kg

DRUGS (14)
  1. LEVAQUIN [Concomitant]
     Route: 048
     Dates: start: 20100804, end: 20100809
  2. PREDNISONE TAB [Suspect]
     Indication: PROSTATE CANCER METASTATIC
     Dosage: CYCLES 1 - 7
     Route: 048
     Dates: start: 20100322, end: 20100910
  3. LUPRON [Concomitant]
     Indication: CANCER PAIN
     Route: 030
     Dates: start: 20070703
  4. METFORMIN HCL [Concomitant]
     Indication: TYPE 2 DIABETES MELLITUS
     Route: 048
     Dates: start: 20090101, end: 20100917
  5. TOPROL-XL [Concomitant]
     Indication: HYPERTENSION
     Route: 048
     Dates: start: 20000101
  6. LEVAQUIN [Concomitant]
     Indication: INFECTION
     Dosage: FREQUENCY: TWICE INTRAVENOUS
     Route: 042
     Dates: start: 20100803, end: 20100804
  7. ABIRATERONE ACETATE [Suspect]
     Route: 048
  8. LUPRON [Concomitant]
     Indication: HORMONE THERAPY
     Route: 030
     Dates: start: 20070703
  9. ASPIRIN [Concomitant]
     Indication: CARDIOVASCULAR EVENT PROPHYLAXIS
     Route: 048
     Dates: start: 20000101, end: 20100913
  10. LUPRON [Concomitant]
     Route: 030
     Dates: start: 20100322
  11. ABIRATERONE ACETATE [Suspect]
     Indication: PROSTATE CANCER METASTATIC
     Dosage: CYCLES 1 - 7
     Route: 048
     Dates: start: 20100322, end: 20100910
  12. LUPRON [Concomitant]
     Route: 030
     Dates: start: 20100322
  13. LISINOPRIL [Concomitant]
     Indication: HYPERTENSION
     Route: 048
     Dates: start: 20000101
  14. TYLENOL [Concomitant]
     Indication: CHILLS
     Route: 048
     Dates: start: 20100803, end: 20100804

REACTIONS (1)
  - B-CELL TYPE ACUTE LEUKAEMIA [None]
